FAERS Safety Report 13569839 (Version 2)
Quarter: 2017Q4

REPORT INFORMATION
  Report Type: Spontaneous
  Country: US (occurrence: US)
  Receive Date: 20170522
  Receipt Date: 20171023
  Transmission Date: 20180320
  Serious: No
  Sender: FDA-Public Use
  Company Number: US-SUNOVION-2017SUN002085

PATIENT

DRUGS (2)
  1. LATUDA [Suspect]
     Active Substance: LURASIDONE HYDROCHLORIDE
     Dosage: 20 MG, UNK
     Route: 048
  2. LATUDA [Suspect]
     Active Substance: LURASIDONE HYDROCHLORIDE
     Dosage: UNK
     Route: 048

REACTIONS (3)
  - Somnolence [Unknown]
  - Headache [Unknown]
  - Feeling abnormal [Unknown]
